FAERS Safety Report 5999963-2 (Version None)
Quarter: 2008Q4

REPORT INFORMATION
  Report Type: 
  Country: None (occurrence: None)
  Receive Date: 20081215
  Receipt Date: 20081201
  Transmission Date: 20090506
  Serious: Yes (Hospitalization)
  Sender: FDA-Public Use
  Company Number: US-BRISTOL-MYERS SQUIBB COMPANY-14439988

PATIENT
  Age: 66 Year
  Sex: Male
  Weight: 109 kg

DRUGS (6)
  1. CETUXIMAB [Suspect]
     Indication: PROSTATE CANCER
     Dosage: STARTED ON 08OCT08.
     Route: 042
     Dates: start: 20081124, end: 20081124
  2. NOVANTRONE [Suspect]
     Indication: PROSTATE CANCER
     Dosage: STARTED ON 08OCT08.
     Route: 042
     Dates: start: 20081120, end: 20081120
  3. PREDNISONE TAB [Concomitant]
     Route: 065
  4. AMBIEN [Concomitant]
     Route: 065
  5. HYDROCODONE BITARTRATE [Concomitant]
     Route: 065
  6. IBUPROFEN [Concomitant]
     Route: 065

REACTIONS (1)
  - EPISTAXIS [None]
